FAERS Safety Report 4958497-4 (Version None)
Quarter: 2006Q1

REPORT INFORMATION
  Report Type: 
  Country: None (occurrence: None)
  Receive Date: 20060127
  Receipt Date: 20050624
  Transmission Date: 20060701
  Serious: Yes (Other)
  Sender: FDA-Public Use
  Company Number: 05-06-1107

PATIENT
  Age: 14 Year
  Sex: Male

DRUGS (1)
  1. CLOZAPINE [Suspect]
     Indication: SCHIZOAFFECTIVE DISORDER
     Dosage: 200-400MG QD, ORAL
     Route: 048
     Dates: start: 20040101, end: 20050601

REACTIONS (1)
  - GRANULOCYTOPENIA [None]
